FAERS Safety Report 6809470-2 (Version None)
Quarter: 2010Q2

REPORT INFORMATION
  Report Type: 
  Country: None (occurrence: None)
  Receive Date: 20100630
  Receipt Date: 20100621
  Transmission Date: 20101027
  Serious: Yes (Life-Threatening)
  Sender: FDA-Public Use
  Company Number: FR-BAXTER-2010BH016543

PATIENT
  Age: 60 Year
  Sex: Female

DRUGS (5)
  1. GAMMAGARD S/D [Suspect]
     Indication: IMMUNODEFICIENCY COMMON VARIABLE
     Route: 042
     Dates: start: 20100601, end: 20100601
  2. GAMMAGARD S/D [Suspect]
     Indication: PRIMARY IMMUNODEFICIENCY SYNDROME
     Route: 042
     Dates: start: 20100601, end: 20100601
  3. SOLU-MEDROL [Concomitant]
     Indication: PREMEDICATION
     Dates: start: 20100601, end: 20100601
  4. POLARAMINE [Concomitant]
     Indication: PREMEDICATION
     Dates: start: 20100601, end: 20100601
  5. ACETAMINOPHEN [Concomitant]
     Indication: PREMEDICATION
     Dates: start: 20100601, end: 20100601

REACTIONS (3)
  - DYSPEPSIA [None]
  - SENSE OF OPPRESSION [None]
  - THROAT IRRITATION [None]
